FAERS Safety Report 5601957-3 (Version None)
Quarter: 2008Q1

REPORT INFORMATION
  Report Type: 
  Country: None (occurrence: None)
  Receive Date: 20080125
  Receipt Date: 20080116
  Transmission Date: 20080703
  Serious: No
  Sender: FDA-Public Use
  Company Number: US-BAYER-200811543NA

PATIENT
  Age: 27 Year
  Sex: Female
  Weight: 55 kg

DRUGS (3)
  1. YAZ [Suspect]
     Indication: MENSTRUATION IRREGULAR
     Route: 048
     Dates: start: 20071204, end: 20071215
  2. YAZ [Suspect]
     Dates: start: 20070101
  3. IBUPROFEN [Concomitant]
     Indication: MUSCLE SPASMS

REACTIONS (11)
  - ABDOMINAL DISTENSION [None]
  - ACNE [None]
  - APHTHOUS STOMATITIS [None]
  - BREAST MASS [None]
  - BREAST SWELLING [None]
  - CYST [None]
  - DYSMENORRHOEA [None]
  - INCREASED APPETITE [None]
  - METRORRHAGIA [None]
  - MOOD ALTERED [None]
  - VAGINAL CYST [None]
